FAERS Safety Report 7586450-3 (Version None)
Quarter: 2011Q2

REPORT INFORMATION
  Report Type: 
  Country: None (occurrence: None)
  Receive Date: 20110630
  Receipt Date: 20110630
  Transmission Date: 20111010
  Serious: No
  Sender: FDA-Public Use
  Company Number: None

PATIENT
  Age: 64 Year
  Sex: Male
  Weight: 70.3075 kg

DRUGS (3)
  1. CHANTIX [Suspect]
     Indication: SMOKING CESSATION THERAPY
     Dosage: .5 MG 1 PER DAY ORAL
     Route: 048
     Dates: start: 20110619
  2. CHANTIX [Suspect]
     Indication: SMOKING CESSATION THERAPY
     Dosage: .5 MG 1 PER DAY ORAL
     Route: 048
     Dates: start: 20110618
  3. CHANTIX [Suspect]
     Indication: SMOKING CESSATION THERAPY
     Dosage: .5 MG 1 PER DAY ORAL
     Route: 048
     Dates: start: 20110620

REACTIONS (8)
  - HOSTILITY [None]
  - AGGRESSION [None]
  - ABNORMAL BEHAVIOUR [None]
  - MOOD ALTERED [None]
  - AGITATION [None]
  - ANXIETY [None]
  - ANGER [None]
  - PERSONALITY CHANGE [None]
